FAERS Safety Report 9455422 (Version 2)
Quarter: 2013Q3

REPORT INFORMATION
  Report Type: Report from Study
  Country: BR (occurrence: BR)
  Receive Date: 20130813
  Receipt Date: 20130910
  Transmission Date: 20140515
  Serious: Yes (Hospitalization, Other)
  Sender: FDA-Public Use
  Company Number: PHHY2013BR086513

PATIENT
  Sex: Male
  Weight: 70 kg

DRUGS (7)
  1. DIOVAN [Suspect]
     Indication: HYPERTENSION
     Dosage: 1 DF (160 MG), DAILY
     Route: 048
  2. DIOVAN [Suspect]
     Dosage: 1 DF (80 MG), QD (IN THE MORNING)
     Route: 048
  3. CLOPIDOGREL [Concomitant]
     Indication: ANTICOAGULANT THERAPY
     Dosage: 1 DF, DAILY
     Route: 048
  4. CARVEDILOL [Concomitant]
     Indication: CARDIAC DISORDER
     Dosage: 1 DF, DAILY
     Route: 048
  5. RIVOTRIL [Concomitant]
     Indication: POOR QUALITY SLEEP
     Dosage: 0.5 DF, DAILY
     Route: 048
  6. AMITRIPTYLINE [Concomitant]
     Indication: INSOMNIA
     Dosage: 1 DF, DAILY
     Route: 048
  7. SIMVASTATIN [Concomitant]
     Indication: ANTICOAGULANT THERAPY
     Dosage: 1 DF, DAILY
     Route: 048

REACTIONS (12)
  - Aortic aneurysm [Recovered/Resolved]
  - Cholelithiasis [Recovering/Resolving]
  - Pancreatitis [Recovered/Resolved]
  - Abdominal pain upper [Recovered/Resolved]
  - Yellow skin [Recovering/Resolving]
  - Back pain [Recovered/Resolved]
  - Pain in extremity [Not Recovered/Not Resolved]
  - Dysstasia [Recovered/Resolved]
  - Tremor [Recovered/Resolved]
  - Bile duct stone [Unknown]
  - Local swelling [Not Recovered/Not Resolved]
  - Hypotension [Recovered/Resolved]
